FAERS Safety Report 8479469-1 (Version None)
Quarter: 2012Q2

REPORT INFORMATION
  Report Type: 
  Country: None (occurrence: None)
  Receive Date: 20120629
  Receipt Date: 20120627
  Transmission Date: 20120825
  Serious: Yes (Other)
  Sender: FDA-Public Use
  Company Number: CA-PURDUE-CAN-2012-0003142

PATIENT
  Sex: Male

DRUGS (5)
  1. HYDROMORPH CONTIN 30 MG [Suspect]
     Indication: PAIN
     Dosage: 30 MG, TID
     Route: 048
  2. OXYIR TABLETS 20 MG [Suspect]
     Dosage: 160 TO 280 MG, DAILY
     Route: 048
  3. FENTANYL CITRATE [Suspect]
     Indication: PAIN
     Dosage: UNK
     Route: 065
  4. OXYIR TABLETS 20 MG [Suspect]
     Indication: BREAKTHROUGH PAIN
     Dosage: 40 MG, QID
     Route: 048
     Dates: start: 20060101
  5. HYDROMORPHONE HCL [Suspect]
     Indication: PAIN
     Dosage: 3 TABLET, UNK
     Route: 048

REACTIONS (3)
  - DRUG DEPENDENCE [None]
  - PAIN [None]
  - DRUG INEFFECTIVE [None]
